FAERS Safety Report 4385777-6 (Version None)
Quarter: 2004Q2

REPORT INFORMATION
  Report Type: 
  Country: None (occurrence: None)
  Receive Date: 20040623
  Receipt Date: 20040614
  Transmission Date: 20050107
  Serious: Yes (Disabling)
  Sender: FDA-Public Use
  Company Number: GBWYE815609JUN04

PATIENT
  Age: 46 Year
  Sex: Female

DRUGS (1)
  1. MINOCIN [Suspect]
     Indication: ACNE
     Dosage: 100 MG 1X PER 1 DAY, ORAL
     Route: 048
     Dates: start: 20040529, end: 20040608

REACTIONS (10)
  - CHEST PAIN [None]
  - FATIGUE [None]
  - HEADACHE [None]
  - LYMPHOCYTE COUNT DECREASED [None]
  - MYALGIA [None]
  - NAUSEA [None]
  - NIGHT SWEATS [None]
  - OPTIC DISCS BLURRED [None]
  - RED BLOOD CELL SEDIMENTATION RATE INCREASED [None]
  - VISION BLURRED [None]
